FAERS Safety Report 26092485 (Version 1)
Quarter: 2025Q4

REPORT INFORMATION
  Report Type: Spontaneous
  Country: EU (occurrence: EU)
  Receive Date: 20251126
  Receipt Date: 20251126
  Transmission Date: 20260118
  Serious: Yes (Hospitalization)
  Sender: PFIZER
  Company Number: EU-PFIZER INC-PV202500138849

PATIENT
  Age: 33 Year
  Sex: Male
  Weight: 107 kg

DRUGS (9)
  1. INFLIXIMAB [Suspect]
     Active Substance: INFLIXIMAB
     Indication: Sarcoidosis
     Dosage: 400 MG, EVERY 2ND WEEK
     Route: 042
     Dates: start: 202302
  2. INFLIXIMAB [Suspect]
     Active Substance: INFLIXIMAB
     Dosage: 400 MG, EVERY 8TH WEEK
     Route: 042
     Dates: start: 20230623
  3. PREDNISOLONE [Concomitant]
     Active Substance: PREDNISOLONE
     Indication: Adrenocortical steroid therapy
     Dosage: UNK
     Dates: start: 20230417
  4. FLUTICASONE FUROATE [Concomitant]
     Active Substance: FLUTICASONE FUROATE
     Indication: Rhinitis allergic
     Dosage: UNK
     Dates: start: 20200303
  5. FOLIC ACID [Concomitant]
     Active Substance: FOLIC ACID
     Indication: Adverse drug reaction
     Dosage: UNK
     Dates: start: 20230510
  6. BRINTELLIX [Concomitant]
     Active Substance: VORTIOXETINE HYDROBROMIDE
     Indication: Depression
     Dosage: UNK
     Dates: start: 20201111
  7. METHOTREXATE [Concomitant]
     Active Substance: METHOTREXATE
     Indication: Rheumatic disorder
     Dosage: UNK
     Dates: start: 20230515
  8. WEGOVY [Concomitant]
     Active Substance: SEMAGLUTIDE
     Indication: Overweight
     Dosage: UNK
     Dates: start: 20230118
  9. OMEPRAZOLE [Concomitant]
     Active Substance: OMEPRAZOLE
     Indication: Gastrooesophageal reflux disease
     Dosage: UNK
     Dates: start: 20200305

REACTIONS (3)
  - Pyrexia [Unknown]
  - Infection [Not Recovered/Not Resolved]
  - Off label use [Unknown]

NARRATIVE: CASE EVENT DATE: 20230201
